FAERS Safety Report 8412063-7 (Version None)
Quarter: 2012Q2

REPORT INFORMATION
  Report Type: 
  Country: None (occurrence: None)
  Receive Date: 20120605
  Receipt Date: 20120518
  Transmission Date: 20120825
  Serious: No
  Sender: FDA-Public Use
  Company Number: US-AMGEN-USASP2012031460

PATIENT
  Age: 5 Year
  Sex: Male

DRUGS (1)
  1. ENBREL [Suspect]
     Indication: JUVENILE ARTHRITIS
     Dosage: 0.8 ML, QWK
     Dates: start: 20120502

REACTIONS (3)
  - PAIN IN EXTREMITY [None]
  - PAIN [None]
  - GAIT DISTURBANCE [None]
